FAERS Safety Report 17455421 (Version 2)
Quarter: 2020Q1

REPORT INFORMATION
  Report Type: Report from Study
  Country: US (occurrence: US)
  Receive Date: 20200225
  Receipt Date: 20200316
  Transmission Date: 20200409
  Serious: Yes (Hospitalization, Other)
  Sender: FDA-Public Use
  Company Number: US-ROCHE-1827584

PATIENT
  Age: 69 Year
  Sex: Female
  Weight: 56.75 kg

DRUGS (13)
  1. ZELBORAF [Suspect]
     Active Substance: VEMURAFENIB
     Indication: MALIGNANT LYMPHOID NEOPLASM
     Dosage: DAILY
     Route: 048
     Dates: start: 20161107
  2. ZELBORAF [Suspect]
     Active Substance: VEMURAFENIB
     Dosage: 2TABS IN MORNING + 1TAB IN EVENING, ONGOING NO
     Route: 048
     Dates: start: 201611, end: 201611
  3. ZELBORAF [Suspect]
     Active Substance: VEMURAFENIB
     Dosage: 2 TABLETS TWICE PER DAY.ONGOING:NO
     Route: 048
     Dates: start: 201608
  4. ZELBORAF [Suspect]
     Active Substance: VEMURAFENIB
     Route: 048
     Dates: start: 201609
  5. ZELBORAF [Suspect]
     Active Substance: VEMURAFENIB
     Indication: LUNG NEOPLASM MALIGNANT
     Dosage: ONE 240MG TAB EVERY 8 HOURS FOR A 720MG TOTAL DOSE
     Route: 048
     Dates: start: 20160823
  6. ZYRTEC [Concomitant]
     Active Substance: CETIRIZINE HYDROCHLORIDE
     Route: 065
     Dates: start: 2016
  7. ZELBORAF [Suspect]
     Active Substance: VEMURAFENIB
     Dosage: 3 TABLETS TWICE A DAY-6 TOTAL (240MG TAB)
     Route: 048
     Dates: start: 20160823
  8. COTELLIC [Suspect]
     Active Substance: COBIMETINIB
     Indication: BRONCHIAL CARCINOMA
     Dosage: TAKE 1 TABLET BY MOUTH DAILY FOR 21 DAYS . TAKE DA FOR 3 WEEKS ON AND THEN 1 WEEK OFF.
     Route: 048
  9. ZELBORAF [Suspect]
     Active Substance: VEMURAFENIB
     Indication: LUNG NEOPLASM MALIGNANT
     Route: 048
     Dates: start: 20161101
  10. ZELBORAF [Suspect]
     Active Substance: VEMURAFENIB
     Route: 048
     Dates: start: 20161114
  11. ZELBORAF [Suspect]
     Active Substance: VEMURAFENIB
     Dosage: ONGOING: YES;3 TABS IN MORNING AND 3 TAB IN EVENING
     Route: 048
     Dates: start: 201607
  12. ZELBORAF [Suspect]
     Active Substance: VEMURAFENIB
     Dosage: ONGOING: YES
     Route: 048
     Dates: start: 201608
  13. ZELBORAF [Suspect]
     Active Substance: VEMURAFENIB
     Dosage: 3 TABS IN MORNING AND 3 TAB IN EVENING
     Route: 048

REACTIONS (22)
  - Intentional product use issue [Unknown]
  - Acrochordon [Not Recovered/Not Resolved]
  - Cardiac neoplasm malignant [Unknown]
  - Asthenia [Not Recovered/Not Resolved]
  - Madarosis [Not Recovered/Not Resolved]
  - Malaise [Not Recovered/Not Resolved]
  - Reading disorder [Not Recovered/Not Resolved]
  - Pain in extremity [Unknown]
  - Cough [Not Recovered/Not Resolved]
  - Alopecia [Recovering/Resolving]
  - Rash [Recovered/Resolved]
  - Acrochordon [Unknown]
  - Intentional product use issue [Unknown]
  - Photosensitivity reaction [Not Recovered/Not Resolved]
  - Fatigue [Not Recovered/Not Resolved]
  - Hypersensitivity [Recovered/Resolved]
  - Oropharyngeal pain [Recovered/Resolved]
  - Hypersensitivity [Unknown]
  - Hair texture abnormal [Not Recovered/Not Resolved]
  - Arthralgia [Not Recovered/Not Resolved]
  - Off label use [Unknown]
  - Arthralgia [Unknown]

NARRATIVE: CASE EVENT DATE: 201607
